FAERS Safety Report 25606634 (Version 1)
Quarter: 2025Q3

REPORT INFORMATION
  Report Type: Spontaneous
  Country: US (occurrence: None)
  Receive Date: 20250724
  Receipt Date: 20250724
  Transmission Date: 20251020
  Serious: Yes (Other)
  Sender: FDA-CTU
  Company Number: None

PATIENT
  Age: 46 Year
  Sex: Female
  Weight: 126 kg

DRUGS (1)
  1. MYRBETRIQ [Suspect]
     Active Substance: MIRABEGRON
     Indication: Hypertonic bladder
     Dates: start: 20241030, end: 20250703

REACTIONS (3)
  - Eye discharge [None]
  - Eye swelling [None]
  - Dry eye [None]

NARRATIVE: CASE EVENT DATE: 20241101
